FAERS Safety Report 12346525 (Version 1)
Quarter: 2016Q2

REPORT INFORMATION
  Report Type: Spontaneous
  Country: BR (occurrence: BR)
  Receive Date: 20160509
  Receipt Date: 20160509
  Transmission Date: 20160815
  Serious: Yes (Hospitalization, Other)
  Sender: FDA-Public Use
  Company Number: BR-009507513-1604BRA015527

PATIENT
  Age: 72 Year
  Sex: Male
  Weight: 77 kg

DRUGS (3)
  1. MARESIS [Concomitant]
     Indication: RHINITIS
     Dosage: 1 PUFF, QD
     Route: 055
     Dates: start: 2014
  2. VYTORIN [Suspect]
     Active Substance: EZETIMIBE\SIMVASTATIN
     Indication: BLOOD CHOLESTEROL INCREASED
     Dosage: 1 TABLET, QD
     Route: 048
     Dates: start: 2001
  3. VYTORIN [Suspect]
     Active Substance: EZETIMIBE\SIMVASTATIN
     Indication: BLOOD CHOLESTEROL INCREASED
     Dosage: 1 TABLET, QD
     Route: 048
     Dates: start: 20160420

REACTIONS (3)
  - Drug ineffective [Not Recovered/Not Resolved]
  - Ligament rupture [Recovered/Resolved]
  - Carotid artery occlusion [Not Recovered/Not Resolved]

NARRATIVE: CASE EVENT DATE: 2010
